FAERS Safety Report 5224284-5 (Version None)
Quarter: 2007Q1

REPORT INFORMATION
  Report Type: 
  Country: None (occurrence: None)
  Receive Date: 20070130
  Receipt Date: 20070122
  Transmission Date: 20070707
  Serious: Yes (Other)
  Sender: FDA-Public Use
  Company Number: US-ELI_LILLY_AND_COMPANY-US200701004509

PATIENT
  Sex: Male

DRUGS (9)
  1. HUMULIN N [Suspect]
     Indication: DIABETES MELLITUS
     Dosage: 15 U, EACH MORNING
     Dates: start: 20060101
  2. HUMULIN N [Suspect]
     Dosage: 5 U, EACH EVENING
     Dates: start: 20060101
  3. ZOCOR [Concomitant]
     Indication: BLOOD CHOLESTEROL
  4. SIMVASTATIN [Concomitant]
     Indication: BLOOD CHOLESTEROL
  5. GABAPENTIN [Concomitant]
  6. STARLIX [Concomitant]
     Indication: DIABETES MELLITUS
  7. AVANDIA [Concomitant]
     Indication: DIABETES MELLITUS
  8. METFORMIN HCL [Concomitant]
     Indication: DIABETES MELLITUS
  9. COZAAR [Concomitant]
     Indication: BLOOD PRESSURE INCREASED

REACTIONS (1)
  - BLINDNESS [None]
